FAERS Safety Report 12240013 (Version 1)
Quarter: 2016Q2

REPORT INFORMATION
  Report Type: Spontaneous
  Country: US (occurrence: US)
  Receive Date: 20160405
  Receipt Date: 20160405
  Transmission Date: 20160815
  Serious: No
  Sender: FDA-Public Use
  Company Number: US-ROCHE-1695186

PATIENT
  Sex: Female

DRUGS (2)
  1. ERIVEDGE [Suspect]
     Active Substance: VISMODEGIB
     Indication: BASAL CELL CARCINOMA
     Route: 048
     Dates: start: 20151015
  2. CARISOPRODOL. [Concomitant]
     Active Substance: CARISOPRODOL

REACTIONS (4)
  - Myalgia [Unknown]
  - Alopecia [Unknown]
  - Ageusia [Unknown]
  - Musculoskeletal stiffness [Unknown]
